FAERS Safety Report 12518712 (Version 9)
Quarter: 2017Q3

REPORT INFORMATION
  Report Type: Report from Study
  Country: GB (occurrence: GB)
  Receive Date: 20160630
  Receipt Date: 20170714
  Transmission Date: 20171127
  Serious: Yes (Hospitalization)
  Sender: FDA-Public Use
  Company Number: GB-BRISTOL-MYERS SQUIBB COMPANY-BMS-2016-051906

PATIENT
  Age: 64 Year
  Sex: Female
  Weight: 88.5 kg

DRUGS (10)
  1. NIVOLUMAB [Suspect]
     Active Substance: NIVOLUMAB
     Indication: NON-SMALL CELL LUNG CANCER
     Dosage: 257 MG, UNK
     Route: 065
     Dates: start: 20160223, end: 20160223
  2. NIVOLUMAB [Suspect]
     Active Substance: NIVOLUMAB
     Indication: PRODUCT USED FOR UNKNOWN INDICATION
     Dosage: 246 MG, UNK
     Route: 065
     Dates: start: 20160405, end: 20160405
  3. NIVOLUMAB [Suspect]
     Active Substance: NIVOLUMAB
     Indication: PRODUCT USED FOR UNKNOWN INDICATION
     Dosage: 246 MG, UNK
     Route: 065
     Dates: start: 20160503, end: 20160503
  4. NIVOLUMAB [Suspect]
     Active Substance: NIVOLUMAB
     Indication: PRODUCT USED FOR UNKNOWN INDICATION
     Dosage: 240 MG, UNK
     Route: 065
     Dates: start: 20160517, end: 20160517
  5. ORAMORPH [Concomitant]
     Active Substance: MORPHINE SULFATE
     Indication: COUGH
     Dosage: 40 MG, UNK
     Route: 048
     Dates: start: 201606
  6. ORAMORPH [Concomitant]
     Active Substance: MORPHINE SULFATE
     Indication: CHEST PAIN
     Dosage: 2.5 ML, UNK
     Route: 048
     Dates: start: 20160118
  7. ZOMETA [Concomitant]
     Active Substance: ZOLEDRONIC ACID
     Indication: HYPERCALCAEMIA
     Dosage: UNK MG, UNK
     Route: 042
     Dates: start: 20150901
  8. NIVOLUMAB [Suspect]
     Active Substance: NIVOLUMAB
     Indication: PRODUCT USED FOR UNKNOWN INDICATION
     Dosage: 257 MG, UNK
     Route: 065
     Dates: start: 20160308, end: 20160308
  9. NIVOLUMAB [Suspect]
     Active Substance: NIVOLUMAB
     Indication: PRODUCT USED FOR UNKNOWN INDICATION
     Dosage: 246 MG, UNK
     Route: 065
     Dates: start: 20160322, end: 20160322
  10. NIVOLUMAB [Suspect]
     Active Substance: NIVOLUMAB
     Indication: PRODUCT USED FOR UNKNOWN INDICATION
     Dosage: 246 MG, UNK
     Route: 065
     Dates: start: 20160419, end: 20160419

REACTIONS (1)
  - Arthritis [Recovered/Resolved]

NARRATIVE: CASE EVENT DATE: 20160606
